FAERS Safety Report 24689346 (Version 1)
Quarter: 2024Q4

REPORT INFORMATION
  Report Type: Spontaneous
  Country: IN (occurrence: IN)
  Receive Date: 20241203
  Receipt Date: 20241203
  Transmission Date: 20250115
  Serious: Yes (Death, Other)
  Sender: MERCK
  Company Number: IN-009507513-2412IND000171

PATIENT
  Age: 40 Year
  Sex: Male

DRUGS (3)
  1. CASPOFUNGIN ACETATE [Suspect]
     Active Substance: CASPOFUNGIN ACETATE
     Indication: Endocarditis candida
     Dosage: 70 MILLIGRAM A LOADING DOSE
  2. CASPOFUNGIN ACETATE [Suspect]
     Active Substance: CASPOFUNGIN ACETATE
     Dosage: 50 MILLIGRAM, QD
  3. CASPOFUNGIN ACETATE [Suspect]
     Active Substance: CASPOFUNGIN ACETATE
     Dosage: INCREASED TO 150 MILLIGRAM, QD
     Route: 042

REACTIONS (2)
  - Cardiac arrest [Fatal]
  - Drug ineffective [Unknown]
